FAERS Safety Report 5985611-4 (Version None)
Quarter: 2008Q4

REPORT INFORMATION
  Report Type: 
  Country: None (occurrence: None)
  Receive Date: 20081208
  Receipt Date: 20080326
  Transmission Date: 20090506
  Serious: No
  Sender: FDA-Public Use
  Company Number: US-AMGEN-KDL263814

PATIENT
  Sex: Male
  Weight: 113.5 kg

DRUGS (5)
  1. ENBREL [Suspect]
     Indication: RHEUMATOID ARTHRITIS
     Route: 058
     Dates: start: 20070801, end: 20080201
  2. GLUCOPHAGE [Concomitant]
  3. HYZAAR [Concomitant]
  4. VYTORIN [Concomitant]
  5. ALEVE [Concomitant]

REACTIONS (4)
  - ARTHRALGIA [None]
  - EPISTAXIS [None]
  - HEADACHE [None]
  - JOINT SWELLING [None]
